FAERS Safety Report 8683733 (Version 2)
Quarter: 2012Q4

REPORT INFORMATION
  Report Type: 
  Country: RO (occurrence: RO)
  Receive Date: 20120726
  Receipt Date: 20121109
  Transmission Date: 20130627
  Serious: Yes (Death, Other)
  Sender: FDA-Public Use
  Company Number: PHHY2012RO063514

PATIENT
  Sex: Male

DRUGS (1)
  1. TASIGNA [Suspect]
     Indication: CHRONIC MYELOID LEUKAEMIA
     Dosage: 2 DF, per day
     Route: 048
     Dates: start: 20090306

REACTIONS (3)
  - Cerebral haemorrhage [Fatal]
  - Skin haemorrhage [Unknown]
  - Thrombocytopenia [Unknown]
